FAERS Safety Report 7183487-3 (Version None)
Quarter: 2010Q4

REPORT INFORMATION
  Report Type: 
  Country: None (occurrence: None)
  Receive Date: 20101222
  Receipt Date: 20101208
  Transmission Date: 20110411
  Serious: Yes (Other)
  Sender: FDA-Public Use
  Company Number: PHHY2010FR84972

PATIENT
  Age: 45 Year
  Sex: Male

DRUGS (2)
  1. EXJADE [Suspect]
     Dosage: 500 MG/DAY
  2. EXJADE [Suspect]
     Dosage: 750-1000 MG/DAY

REACTIONS (7)
  - ACTIVITIES OF DAILY LIVING IMPAIRED [None]
  - GAIT DISTURBANCE [None]
  - IMPAIRED DRIVING ABILITY [None]
  - MYALGIA [None]
  - PARAESTHESIA [None]
  - SENSATION OF HEAVINESS [None]
  - SPINAL CORD COMPRESSION [None]
